FAERS Safety Report 5750740-7 (Version None)
Quarter: 2008Q2

REPORT INFORMATION
  Report Type: 
  Country: None (occurrence: None)
  Receive Date: 20080523
  Receipt Date: 20080523
  Transmission Date: 20081010
  Serious: Yes (Hospitalization)
  Sender: FDA-Public Use
  Company Number: None

PATIENT
  Age: 48 Year
  Sex: Male
  Weight: 82 kg

DRUGS (1)
  1. IBUROFEN [Suspect]
     Indication: ARTHRALGIA
     Dosage: 800 MG Q6H PO
     Route: 048

REACTIONS (3)
  - GASTRIC ULCER [None]
  - MELAENA [None]
  - RECTAL HAEMORRHAGE [None]
